FAERS Safety Report 22602051 (Version 1)
Quarter: 2023Q2

REPORT INFORMATION
  Report Type: Spontaneous
  Country: US (occurrence: US)
  Receive Date: 20230614
  Receipt Date: 20230614
  Transmission Date: 20230722
  Serious: No
  Sender: FDA-Public Use
  Company Number: US-MYLANLABS-2023M1043949

PATIENT
  Sex: Male
  Weight: 223 kg

DRUGS (13)
  1. GABAPENTIN [Suspect]
     Active Substance: GABAPENTIN
     Indication: Neuralgia
     Dosage: 1 DOSAGE FORM, TID (90 CAP)
     Route: 048
     Dates: start: 20220112, end: 20221107
  2. NURTEC ODT [Concomitant]
     Active Substance: RIMEGEPANT SULFATE
     Indication: Prophylaxis
     Dosage: 1 DOSAGE FORM, QD (90 DAY)
     Route: 048
     Dates: start: 20220112, end: 20220309
  3. ZYLOPRIM [Concomitant]
     Active Substance: ALLOPURINOL
     Dosage: 1 DOSAGE FORM, QD MORNING
     Route: 048
     Dates: start: 20210429, end: 20221107
  4. NORVASC [Concomitant]
     Active Substance: AMLODIPINE BESYLATE
     Indication: Hypertension
     Dosage: 1 DOSAGE FORM, QD
     Route: 048
     Dates: start: 20211101, end: 20220913
  5. COLCRYS [Concomitant]
     Active Substance: COLCHICINE
     Indication: Gout
     Dosage: 1 DOSAGE FORM, QD
     Route: 048
     Dates: start: 20210425, end: 20220123
  6. TRULICITY [Concomitant]
     Active Substance: DULAGLUTIDE
     Indication: Diabetes mellitus
     Dosage: UNK
     Route: 058
     Dates: start: 20200923, end: 20220123
  7. DRISDOL [Concomitant]
     Active Substance: ERGOCALCIFEROL
     Indication: Diabetes mellitus
     Dosage: 1 DOSAGE FORM, QW
     Route: 048
     Dates: start: 20200522, end: 20220123
  8. ZETIA [Concomitant]
     Active Substance: EZETIMIBE
     Dosage: 1 DOSAGE FORM, QD
     Route: 048
     Dates: start: 20200915, end: 20220913
  9. SYNTHROID [Concomitant]
     Active Substance: LEVOTHYROXINE SODIUM
     Dosage: 1 DOSAGE FORM, QD
     Route: 048
     Dates: start: 20200915, end: 20221107
  10. MYRBETRIQ [Concomitant]
     Active Substance: MIRABEGRON
     Indication: Micturition urgency
     Dosage: 1 DOSAGE FORM, QD
     Route: 048
     Dates: start: 20201001, end: 20220123
  11. XARELTO [Concomitant]
     Active Substance: RIVAROXABAN
     Indication: Prophylaxis
     Dosage: 1 DOSAGE FORM, QD
     Route: 048
     Dates: start: 20211101, end: 20220913
  12. CRESTOR [Concomitant]
     Active Substance: ROSUVASTATIN CALCIUM
     Dosage: 1 DOSAGE FORM, QD
     Route: 048
     Dates: start: 20210422, end: 20220913
  13. DIOVAN [Concomitant]
     Active Substance: VALSARTAN
     Indication: Hypertensive heart disease
     Dosage: 1 DOSAGE FORM, QD
     Route: 048
     Dates: start: 20211101, end: 20220913

REACTIONS (8)
  - Hypoaesthesia [Unknown]
  - Pain in extremity [Unknown]
  - Neck pain [Unknown]
  - Migraine [Unknown]
  - Vertigo [Unknown]
  - Back pain [Unknown]
  - Pain [Unknown]
  - Paraesthesia [Unknown]
